FAERS Safety Report 17885351 (Version 1)
Quarter: 2020Q2

REPORT INFORMATION
  Report Type: Spontaneous
  Country: HR (occurrence: HR)
  Receive Date: 20200611
  Receipt Date: 20200611
  Transmission Date: 20200714
  Serious: Yes (Other)
  Sender: FDA-Public Use
  Company Number: HR-US-PROVELL PHARMACEUTICALS LLC-9167023

PATIENT
  Age: 78 Year
  Sex: Female

DRUGS (7)
  1. ELIQUIS [Concomitant]
     Active Substance: APIXABAN
     Indication: PRODUCT USED FOR UNKNOWN INDICATION
  2. RITMONORM [Suspect]
     Active Substance: PROPAFENONE HYDROCHLORIDE
     Indication: PRODUCT USED FOR UNKNOWN INDICATION
     Dates: start: 202003, end: 202005
  3. LIPEX                              /00848101/ [Concomitant]
     Indication: PRODUCT USED FOR UNKNOWN INDICATION
  4. EUTHYROX [Suspect]
     Active Substance: LEVOTHYROXINE SODIUM
     Indication: HYPOTHYROIDISM
     Dosage: 75 MCG ONE DAY AND 100 MCG ALTERNATE DAY
     Route: 048
     Dates: start: 202003
  5. EUTHYROX [Suspect]
     Active Substance: LEVOTHYROXINE SODIUM
     Indication: AUTOIMMUNE THYROIDITIS
  6. DAROB [Suspect]
     Active Substance: SOTALOL HYDROCHLORIDE
     Indication: PRODUCT USED FOR UNKNOWN INDICATION
     Dosage: THERAPY START DATE MAY 2020
     Dates: end: 202005
  7. BETASERC                           /00141801/ [Concomitant]
     Active Substance: BETAHISTINE
     Indication: PRODUCT USED FOR UNKNOWN INDICATION

REACTIONS (14)
  - Ill-defined disorder [Unknown]
  - Feeding disorder [Unknown]
  - Blood pressure increased [Recovered/Resolved]
  - Atrial fibrillation [Recovered/Resolved]
  - Muscle spasms [Recovered/Resolved]
  - Dehydration [Unknown]
  - Blood thyroid stimulating hormone increased [Unknown]
  - Peripheral coldness [Recovered/Resolved]
  - Nausea [Unknown]
  - Seizure [Recovered/Resolved]
  - Insomnia [Unknown]
  - Drug interaction [Unknown]
  - Vomiting [Recovered/Resolved]
  - Therapeutic response decreased [Unknown]

NARRATIVE: CASE EVENT DATE: 2020
